FAERS Safety Report 18761351 (Version 1)
Quarter: 2021Q1

REPORT INFORMATION
  Report Type: Spontaneous
  Country: DE (occurrence: DE)
  Receive Date: 20210120
  Receipt Date: 20210120
  Transmission Date: 20210419
  Serious: Yes (Other)
  Sender: FDA-Public Use
  Company Number: DE-TEVA-2021-DE-1870083

PATIENT
  Age: 6 Year
  Sex: Male

DRUGS (3)
  1. FLUDARABINE [Suspect]
     Active Substance: FLUDARABINE PHOSPHATE
     Indication: IMMUNOSUPPRESSANT DRUG THERAPY
     Dosage: AT THE TIME OF LAST FOLLOW?UP EXAMINATION, HE WAS NOT RECEIVING IMMUNOSUPPRESSION TREATMENT
     Route: 065
  2. ATG?FRESENIUS [Suspect]
     Active Substance: LAPINE T-LYMPHOCYTE IMMUNE GLOBULIN
     Indication: IMMUNOSUPPRESSANT DRUG THERAPY
     Dosage: AT THE TIME OF LAST FOLLOW?UP EXAMINATION, HE WAS NOT RECEIVING IMMUNOSUPPRESSION TREATMENT
     Route: 065
  3. CYCLOPHOSPHAMIDE. [Suspect]
     Active Substance: CYCLOPHOSPHAMIDE
     Indication: IMMUNOSUPPRESSANT DRUG THERAPY
     Dosage: AT THE TIME OF LAST FOLLOW?UP EXAMINATION, HE WAS NOT RECEIVING IMMUNOSUPPRESSION TREATMENT
     Route: 065

REACTIONS (5)
  - Pulmonary hypertension [Unknown]
  - BK virus infection [Recovered/Resolved]
  - Metapneumovirus infection [Unknown]
  - Pericardial effusion [Unknown]
  - Urinary tract infection viral [Recovered/Resolved]
